FAERS Safety Report 14173527 (Version 7)
Quarter: 2019Q4

REPORT INFORMATION
  Report Type: Spontaneous
  Country: US (occurrence: US)
  Receive Date: 20171109
  Receipt Date: 20191118
  Transmission Date: 20200122
  Serious: Yes (Other)
  Sender: FDA-Public Use
  Company Number: US-PFIZER INC-2017479917

PATIENT
  Age: 61 Year
  Sex: Female

DRUGS (3)
  1. IBRANCE [Suspect]
     Active Substance: PALBOCICLIB
     Dosage: 100 MG, CYCLIC
     Dates: start: 20160105
  2. IBRANCE [Suspect]
     Active Substance: PALBOCICLIB
     Indication: BREAST CANCER METASTATIC
     Dosage: 125 MG, CYCLIC
     Dates: end: 20160105
  3. LETROZOLE. [Suspect]
     Active Substance: LETROZOLE
     Indication: BREAST CANCER METASTATIC
     Dosage: UNK

REACTIONS (16)
  - Feeling abnormal [Unknown]
  - Cough [Unknown]
  - Alopecia [Unknown]
  - Nasopharyngitis [Unknown]
  - Pyrexia [Unknown]
  - Influenza like illness [Unknown]
  - Nausea [Not Recovered/Not Resolved]
  - Headache [Unknown]
  - Neutropenia [Unknown]
  - Stomatitis [Recovering/Resolving]
  - Sinusitis [Unknown]
  - Arthralgia [Unknown]
  - Cystitis [Unknown]
  - Epistaxis [Unknown]
  - Sneezing [Unknown]
  - Malaise [Unknown]
